FAERS Safety Report 4715713-1 (Version None)
Quarter: 2005Q2

REPORT INFORMATION
  Report Type: 
  Country: None (occurrence: None)
  Receive Date: 20050630
  Receipt Date: 20050503
  Transmission Date: 20051028
  Serious: No
  Sender: FDA-Public Use
  Company Number: 214211

PATIENT
  Age: 60 Year
  Sex: Male

DRUGS (8)
  1. AVASTIN [Suspect]
     Indication: COLORECTAL CANCER
     Dosage: 4 MG/KG, Q2W, INTRAVENOUS
     Route: 042
  2. OXALIPLATIN(OXALIPLATIN) [Concomitant]
     Indication: COLORECTAL CANCER
     Route: 065
  3. ZOFRAN [Concomitant]
  4. DEXAMETHASONE [Concomitant]
  5. BENADRYL [Concomitant]
  6. PEPCID [Concomitant]
  7. DIGOXIN [Concomitant]
  8. LASIX [Concomitant]

REACTIONS (1)
  - RASH [None]
